FAERS Safety Report 15399970 (Version 1)
Quarter: 2018Q4

REPORT INFORMATION
  Report Type: Report from Study
  Country: IT (occurrence: IT)
  Receive Date: 20180919
  Receipt Date: 20180919
  Transmission Date: 20190204
  Serious: Yes (Life-Threatening)
  Sender: FDA-Public Use
  Company Number: IT-TEVA-2018-IT-955897

PATIENT
  Age: 80 Year
  Sex: Female

DRUGS (8)
  1. DELTACORTENE 5 MG COMPRESSE [Concomitant]
     Active Substance: PREDNISONE
     Dosage: 5 MILLIGRAM DAILY;
     Route: 048
  2. UNIPRILDIUR 5 MG + 25 MG COMPRESSE [Concomitant]
     Dosage: 1 DOSAGE FORMS DAILY;
     Route: 048
  3. TOTALIP 20 MG COMPRESSE RIVESTITE CON FILM [Concomitant]
     Dosage: 20 MILLIGRAM DAILY;
     Route: 048
  4. GLUCOPHAGE [Suspect]
     Active Substance: METFORMIN HYDROCHLORIDE
     Indication: DIABETES MELLITUS
     Dosage: 500 MILLIGRAM DAILY;
     Route: 048
  5. ANTRA 10 MG CAPSULE RIGIDE GASTRORESISTENTI [Concomitant]
     Dosage: 1 DOSAGE FORMS DAILY;
     Route: 048
  6. LASIX [Concomitant]
     Active Substance: FUROSEMIDE
     Dosage: 2 DOSAGE FORMS DAILY;
     Route: 048
  7. FOLINA 5 MG CAPSULE MOLLI [Concomitant]
     Dosage: 1 DOSAGE FORMS DAILY;
     Route: 048
  8. METFORMIN [Suspect]
     Active Substance: METFORMIN HYDROCHLORIDE
     Indication: DIABETES MELLITUS
     Dosage: 1700 MILLIGRAM DAILY;
     Route: 065

REACTIONS (2)
  - Metabolic acidosis [Unknown]
  - Coma [Unknown]

NARRATIVE: CASE EVENT DATE: 20180605
